FAERS Safety Report 14162405 (Version 1)
Quarter: 2017Q4

REPORT INFORMATION
  Report Type: Spontaneous
  Country: CN (occurrence: CN)
  Receive Date: 20171106
  Receipt Date: 20171106
  Transmission Date: 20180321
  Serious: Yes (Other)
  Sender: FDA-Public Use
  Company Number: CN-PFIZER INC-2017474416

PATIENT
  Age: 83 Year
  Sex: Female
  Weight: 44 kg

DRUGS (2)
  1. NORVASC [Suspect]
     Active Substance: AMLODIPINE BESYLATE
     Indication: HYPERTENSION
     Dosage: 10 MG, 1X/DAY
     Route: 048
     Dates: start: 20170325, end: 20170525
  2. FU TA LIN [Suspect]
     Active Substance: DICLOFENAC DIETHYLAMINE
     Indication: OSTEOARTHRITIS
     Dosage: 75 MG, 1X/DAY
     Route: 048
     Dates: start: 20170325, end: 20170525

REACTIONS (3)
  - Intestinal obstruction [Recovering/Resolving]
  - Oedema peripheral [Recovering/Resolving]
  - Abdominal distension [Recovering/Resolving]

NARRATIVE: CASE EVENT DATE: 20170425
